FAERS Safety Report 20150357 (Version 1)
Quarter: 2021Q4

REPORT INFORMATION
  Report Type: Spontaneous
  Country: US (occurrence: US)
  Receive Date: 20211206
  Receipt Date: 20211206
  Transmission Date: 20220303
  Serious: No
  Sender: FDA-Public Use
  Company Number: US-TEVA-2021-US-1981721

PATIENT
  Sex: Male

DRUGS (3)
  1. CICLOPIROX [Suspect]
     Active Substance: CICLOPIROX
     Indication: Dandruff
     Route: 065
  2. CICLOPIROX [Suspect]
     Active Substance: CICLOPIROX
     Indication: Dry skin
     Route: 065
  3. CICLOPIROX [Suspect]
     Active Substance: CICLOPIROX
     Indication: Fungal infection

REACTIONS (4)
  - Alopecia [Unknown]
  - Drug ineffective [Unknown]
  - Product prescribing error [Unknown]
  - Inappropriate schedule of product administration [Unknown]
